FAERS Safety Report 22158448 (Version 1)
Quarter: 2023Q1

REPORT INFORMATION
  Report Type: Report from Study
  Country: US (occurrence: None)
  Receive Date: 20230331
  Receipt Date: 20230331
  Transmission Date: 20230418
  Serious: Yes (Other)
  Sender: FDA-Public Use
  Company Number: US-Unichem Pharmaceuticals (USA) Inc-UCM202303-000295

PATIENT
  Age: 58 Year
  Sex: Female

DRUGS (14)
  1. LAMOTRIGINE [Suspect]
     Active Substance: LAMOTRIGINE
     Indication: Bipolar II disorder
  2. LAMOTRIGINE [Suspect]
     Active Substance: LAMOTRIGINE
  3. LAMOTRIGINE [Suspect]
     Active Substance: LAMOTRIGINE
  4. LAMOTRIGINE [Suspect]
     Active Substance: LAMOTRIGINE
  5. DIVALPROEX SODIUM [Suspect]
     Active Substance: DIVALPROEX SODIUM
     Indication: Depression
     Dosage: UNKNOWN
  6. RISPERIDONE [Suspect]
     Active Substance: RISPERIDONE
     Indication: Depression
     Dosage: UNKNOWN
  7. BUPROPION [Suspect]
     Active Substance: BUPROPION
     Indication: Affective disorder
  8. DULOXETINE [Suspect]
     Active Substance: DULOXETINE
     Indication: Affective disorder
  9. GABAPENTIN [Suspect]
     Active Substance: GABAPENTIN
     Indication: Affective disorder
  10. TRAZODONE [Suspect]
     Active Substance: TRAZODONE HYDROCHLORIDE
     Indication: Affective disorder
  11. ARIPIPRAZOLE [Suspect]
     Active Substance: ARIPIPRAZOLE
     Indication: Affective disorder
     Dosage: UNKNOWN
  12. QUETIAPINE [Suspect]
     Active Substance: QUETIAPINE
     Indication: Depression
     Dosage: UNKNOWN
  13. LITHIUM [Concomitant]
     Active Substance: LITHIUM
     Indication: Affective disorder
     Dosage: UNKNOWN
  14. VILAZODONE [Concomitant]
     Active Substance: VILAZODONE
     Indication: Affective disorder
     Dosage: UNKNOWN

REACTIONS (5)
  - Tardive dyskinesia [Recovered/Resolved]
  - Deafness [Unknown]
  - Sensory loss [Unknown]
  - Facial paresis [Unknown]
  - Chorea [Recovering/Resolving]
